FAERS Safety Report 12788890 (Version 1)
Quarter: 2016Q3

REPORT INFORMATION
  Report Type: Spontaneous
  Country: US (occurrence: US)
  Receive Date: 20160928
  Receipt Date: 20160928
  Transmission Date: 20161109
  Serious: No
  Sender: FDA-Public Use
  Company Number: US-BAYER-2016-182345

PATIENT
  Age: 85 Year
  Sex: Male
  Weight: 72.56 kg

DRUGS (3)
  1. PERDIEM [Concomitant]
     Active Substance: SENNOSIDES
  2. MIRAFIBER SUGAR FREE ORANGE POWDER [Suspect]
     Active Substance: METHYLCELLULOSES
     Indication: GASTROINTESTINAL DISORDER
     Dosage: 1 DF, UNK
     Route: 048
     Dates: start: 20160918
  3. MIRALAX [Suspect]
     Active Substance: POLYETHYLENE GLYCOL 3350
     Dosage: UNK
     Dates: start: 2000, end: 20150919

REACTIONS (4)
  - Product taste abnormal [None]
  - Product quality issue [None]
  - Product use issue [None]
  - Off label use [None]

NARRATIVE: CASE EVENT DATE: 20160919
